FAERS Safety Report 8174000-2 (Version None)
Quarter: 2012Q1

REPORT INFORMATION
  Report Type: 
  Country: None (occurrence: None)
  Receive Date: 20120224
  Receipt Date: 20120214
  Transmission Date: 20120608
  Serious: Yes (Hospitalization)
  Sender: FDA-Public Use
  Company Number: 1000028442

PATIENT
  Age: 65 Year
  Sex: Male

DRUGS (4)
  1. DOGMATYL (SULPIRIDE (SULPIRIDE) [Concomitant]
  2. ANAFRANIL [Concomitant]
  3. LEXAPRO [Suspect]
     Dosage: 20 MG (10 MG, 1 IN 2 D), ORAL
     Route: 048
     Dates: start: 20110801
  4. CYMBALTA [Concomitant]

REACTIONS (2)
  - LOSS OF CONSCIOUSNESS [None]
  - SUICIDE ATTEMPT [None]
